FAERS Safety Report 8276150-9 (Version None)
Quarter: 2012Q2

REPORT INFORMATION
  Report Type: 
  Country: None (occurrence: None)
  Receive Date: 20120406
  Receipt Date: 20120403
  Transmission Date: 20120825
  Serious: Yes (Hospitalization, Other)
  Sender: FDA-Public Use
  Company Number: 2010SP003964

PATIENT
  Age: 43 Year
  Sex: Female
  Weight: 83.9154 kg

DRUGS (3)
  1. TOPROL-XL [Suspect]
     Indication: PRODUCT USED FOR UNKNOWN INDICATION
     Dates: end: 20091013
  2. MULTI-VITAMIN [Concomitant]
  3. NUVARING [Suspect]
     Indication: CONTRACEPTION
     Dosage: VAG
     Route: 067
     Dates: start: 20090322, end: 20090918

REACTIONS (19)
  - TRICUSPID VALVE INCOMPETENCE [None]
  - CARDIAC ANEURYSM [None]
  - VERTIGO [None]
  - OEDEMA PERIPHERAL [None]
  - HEADACHE [None]
  - BALANCE DISORDER [None]
  - FEELING ABNORMAL [None]
  - HYPOAESTHESIA [None]
  - ISCHAEMIC CEREBRAL INFARCTION [None]
  - SKIN DISCOLOURATION [None]
  - MYOKYMIA [None]
  - DYSARTHRIA [None]
  - HYPERTENSION [None]
  - VESTIBULAR DISORDER [None]
  - FALL [None]
  - MALAISE [None]
  - LEFT ATRIAL DILATATION [None]
  - DROOLING [None]
  - DIARRHOEA [None]
